FAERS Safety Report 9190408 (Version 1)
Quarter: 2013Q1

REPORT INFORMATION
  Report Type: Spontaneous
  Country: US (occurrence: None)
  Receive Date: 20120703
  Receipt Date: 20120703
  Transmission Date: 20140127
  Serious: Yes (Other)
  Sender: FDA-Public Use
  Company Number: PHEH2012US005940

PATIENT
  Age: 60 Year
  Sex: Male
  Weight: 100.7 kg

DRUGS (21)
  1. GILENYA [Suspect]
     Dates: start: 201105
  2. CLINDAMYCIN (CLINDAMYCIN)CAPSULE [Concomitant]
  3. VITAMIN D (ERGOCALCIFEROL)CAPSULE [Concomitant]
  4. OMEPRAZOLE (OMEPRAZOLE) [Concomitant]
  5. FAMPRIDINE (FAMPRIDINE) [Concomitant]
  6. AMANTADINE (AMANDTADINE) TABLET [Concomitant]
  7. DIVALPROEX  SODIUM (VALPROATE SEMISODIUM) TABLET [Concomitant]
  8. GABAPENTIN (GABAPENTIN) TABLET [Concomitant]
  9. HYDROCODONE W/APAP (HYDROCODONE, PARACETMOL) [Concomitant]
  10. TIZANIDINE (TIZANIDINE) TABLET [Concomitant]
  11. VENLAFAXINE (VENLAFAXINE) [Concomitant]
  12. FINASTERIDE (FINASTERIDE) TABLET [Concomitant]
  13. SIMVASTATIN (SIMVASTATIN) [Concomitant]
  14. TERAZOSIN (TERAZOSIN)CAPSULE [Concomitant]
  15. ACETIAMINE (ACETIAMINE)TABLET [Concomitant]
  16. ASPIRIN (ACETYLSALICYCLIC ACID) TABLET [Concomitant]
  17. NUVIGIL (ARMODAFINIL) TABLET [Concomitant]
  18. MULTIVITAMINS 9ASCORBIC ACID, ERGOCALCIFEROL, FOLIC ACID, NICOTINAMIDE, PANTHENOL, RETINOL, RIBOFLAVIN, THIAMINE HYDROCHLORIDE) TABLET [Concomitant]
  19. FISH OIL (FISH OIL) [Concomitant]
  20. EYE VITAMINS [Concomitant]
  21. SYMMETREL (AMANTADINE HYDROCHLORIDE) [Concomitant]

REACTIONS (3)
  - Gingival infection [None]
  - Tooth infection [None]
  - Toothache [None]
